FAERS Safety Report 6177763-0 (Version None)
Quarter: 2009Q2

REPORT INFORMATION
  Report Type: 
  Country: None (occurrence: None)
  Receive Date: 20090504
  Receipt Date: 20090422
  Transmission Date: 20091009
  Serious: Yes (Hospitalization, Disabling, Other)
  Sender: FDA-Public Use
  Company Number: US-BAYER-200911162BCC

PATIENT
  Age: 96 Year
  Sex: Female
  Weight: 34 kg

DRUGS (11)
  1. PHILLIPS MILK OF MAGNESIA ORIGINAL [Suspect]
     Indication: CONSTIPATION
     Route: 048
  2. PHILLIPS LAXATIVE DIETARY SUPPLEMENT CAPLETS [Suspect]
     Indication: CONSTIPATION
     Dosage: TOTAL DAILY DOSE: 2 DF  UNIT DOSE: 1 DF
     Route: 048
     Dates: start: 20080101
  3. PHILLIPS MILK OF MAGNESIA CHERRY [Suspect]
     Indication: CONSTIPATION
     Dosage: TOTAL DAILY DOSE: 15 ML  UNIT DOSE: 15 ML
     Route: 048
     Dates: start: 20090406
  4. PLENDIL [Concomitant]
  5. FOSAMAX [Concomitant]
  6. BETOPIC S 0.25% [Concomitant]
  7. LUMIGAN [Concomitant]
  8. MULTI-VITAMIN [Concomitant]
  9. CALCIUM [Concomitant]
  10. SANTURA XR [Concomitant]
  11. MAGNESIUM OXIDE [Concomitant]

REACTIONS (7)
  - CONSTIPATION [None]
  - DIARRHOEA [None]
  - DRUG DEPENDENCE [None]
  - LOSS OF CONSCIOUSNESS [None]
  - MUSCLE ATROPHY [None]
  - WEIGHT DECREASED [None]
  - WHEELCHAIR USER [None]
